FAERS Safety Report 24739056 (Version 1)
Quarter: 2024Q4

REPORT INFORMATION
  Report Type: Report from Study
  Country: ZA (occurrence: ZA)
  Receive Date: 20241216
  Receipt Date: 20241216
  Transmission Date: 20250114
  Serious: Yes (Death, Other)
  Sender: ALEXION PHARMACEUTICALS
  Company Number: ZA-AstraZeneca-CH-00767690A

PATIENT
  Age: 54 Year

DRUGS (34)
  1. BUDESONIDE\FORMOTEROL FUMARATE DIHYDRATE [Suspect]
     Active Substance: BUDESONIDE\FORMOTEROL FUMARATE DIHYDRATE
     Indication: Asthma
     Dosage: 120 DOSE 160/4.5 MCG
  2. BUDESONIDE\FORMOTEROL FUMARATE DIHYDRATE [Suspect]
     Active Substance: BUDESONIDE\FORMOTEROL FUMARATE DIHYDRATE
     Dosage: 120 DOSE 160/4.5 MCG
     Route: 055
  3. BUDESONIDE\FORMOTEROL FUMARATE DIHYDRATE [Suspect]
     Active Substance: BUDESONIDE\FORMOTEROL FUMARATE DIHYDRATE
     Dosage: 120 DOSE 160/4.5 MCG
  4. BUDESONIDE\FORMOTEROL FUMARATE DIHYDRATE [Suspect]
     Active Substance: BUDESONIDE\FORMOTEROL FUMARATE DIHYDRATE
     Dosage: 120 DOSE 160/4.5 MCG
     Route: 055
  5. OMEPRAZOLE [Concomitant]
     Active Substance: OMEPRAZOLE
     Indication: Ulcer
     Dosage: 40 MILLIGRAM
  6. OMEPRAZOLE [Concomitant]
     Active Substance: OMEPRAZOLE
     Dosage: 40 MILLIGRAM
     Route: 048
  7. OMEPRAZOLE [Concomitant]
     Active Substance: OMEPRAZOLE
     Dosage: 40 MILLIGRAM
  8. OMEPRAZOLE [Concomitant]
     Active Substance: OMEPRAZOLE
     Dosage: 40 MILLIGRAM
     Route: 048
  9. SYNALEVE [Concomitant]
     Indication: Pain
  10. SYNALEVE [Concomitant]
     Route: 048
  11. SYNALEVE [Concomitant]
  12. SYNALEVE [Concomitant]
     Route: 048
  13. ALLERGEX [Concomitant]
     Dosage: 4 MILLIGRAM
  14. ALLERGEX [Concomitant]
     Dosage: 4 MILLIGRAM
     Route: 048
  15. ALLERGEX [Concomitant]
     Dosage: 4 MILLIGRAM
  16. ALLERGEX [Concomitant]
     Dosage: 4 MILLIGRAM
     Route: 048
  17. PEPLOC [Concomitant]
     Indication: Ulcer
     Dosage: 40 MILLIGRAM
  18. PEPLOC [Concomitant]
     Dosage: 40 MILLIGRAM
     Route: 048
  19. PEPLOC [Concomitant]
     Dosage: 40 MILLIGRAM
  20. PEPLOC [Concomitant]
     Dosage: 40 MILLIGRAM
     Route: 048
  21. LEVALBUTEROL HYDROCHLORIDE [Concomitant]
     Active Substance: LEVALBUTEROL HYDROCHLORIDE
     Indication: Asthma
  22. LEVALBUTEROL HYDROCHLORIDE [Concomitant]
     Active Substance: LEVALBUTEROL HYDROCHLORIDE
  23. PULMICORT TURBUHALER [Concomitant]
     Active Substance: BUDESONIDE
     Indication: Rhinitis allergic
     Dosage: .5 MILLIGRAM
  24. PULMICORT TURBUHALER [Concomitant]
     Active Substance: BUDESONIDE
     Dosage: .5 MILLIGRAM
     Route: 048
  25. PULMICORT TURBUHALER [Concomitant]
     Active Substance: BUDESONIDE
     Dosage: .5 MILLIGRAM
  26. PULMICORT TURBUHALER [Concomitant]
     Active Substance: BUDESONIDE
     Dosage: .5 MILLIGRAM
     Route: 048
  27. PREDNISONE [Concomitant]
     Active Substance: PREDNISONE
     Dosage: 5 MILLIGRAM
  28. PREDNISONE [Concomitant]
     Active Substance: PREDNISONE
     Dosage: 5 MILLIGRAM
     Route: 048
  29. PREDNISONE [Concomitant]
     Active Substance: PREDNISONE
     Dosage: 5 MILLIGRAM
  30. PREDNISONE [Concomitant]
     Active Substance: PREDNISONE
     Dosage: 5 MILLIGRAM
     Route: 048
  31. MUPIROCIN [Concomitant]
     Active Substance: MUPIROCIN
     Dosage: 20 MILLIGRAM
  32. MUPIROCIN [Concomitant]
     Active Substance: MUPIROCIN
     Dosage: 20 MILLIGRAM
     Route: 061
  33. MUPIROCIN [Concomitant]
     Active Substance: MUPIROCIN
     Dosage: 20 MILLIGRAM
  34. MUPIROCIN [Concomitant]
     Active Substance: MUPIROCIN
     Dosage: 20 MILLIGRAM
     Route: 061

REACTIONS (1)
  - Death [Fatal]
